FAERS Safety Report 21171551 (Version 1)
Quarter: 2022Q3

REPORT INFORMATION
  Report Type: Spontaneous
  Country: PL (occurrence: PL)
  Receive Date: 20220804
  Receipt Date: 20220804
  Transmission Date: 20221027
  Serious: Yes (Other)
  Sender: FDA-Public Use
  Company Number: PL-VITABALANS-031-2022

PATIENT
  Age: 59 Year
  Sex: Female

DRUGS (8)
  1. FLUOXETINE [Suspect]
     Active Substance: FLUOXETINE HYDROCHLORIDE
     Indication: Depression
     Dosage: UNK
     Route: 065
  2. PREGABALIN [Suspect]
     Active Substance: PREGABALIN
     Indication: Mental disorder
     Dosage: 225 MILLIGRAM, UNK
     Route: 065
  3. PREGABALIN [Suspect]
     Active Substance: PREGABALIN
     Dosage: 75 MILLIGRAM, UNK
     Route: 065
  4. PREGABALIN [Suspect]
     Active Substance: PREGABALIN
     Dosage: 150 MILLIGRAM, UNK
     Route: 065
  5. PREGABALIN [Suspect]
     Active Substance: PREGABALIN
     Dosage: 75 MILLIGRAM, BID
     Route: 065
     Dates: start: 202009
  6. AGOMELATINE CITRIC ACID [Suspect]
     Active Substance: AGOMELATINE CITRIC ACID
     Indication: Mental disorder
     Dosage: 25 MILLIGRAM, DAILY
     Route: 065
  7. SULPIRIDE [Suspect]
     Active Substance: SULPIRIDE
     Indication: Mental disorder
     Dosage: 50 MILLIGRAM, UNK
     Route: 065
  8. HYDROXYZINE [Suspect]
     Active Substance: HYDROXYZINE HYDROCHLORIDE
     Indication: Mental disorder
     Dosage: 25 MILLIGRAM, UNK
     Route: 065

REACTIONS (5)
  - Drug ineffective [Unknown]
  - Hepatic enzyme increased [Unknown]
  - Enuresis [Unknown]
  - Sedation complication [Unknown]
  - Drug intolerance [Unknown]
